FAERS Safety Report 23970199 (Version 1)
Quarter: 2024Q2

REPORT INFORMATION
  Report Type: Spontaneous
  Country: US (occurrence: US)
  Receive Date: 20240613
  Receipt Date: 20240613
  Transmission Date: 20240716
  Serious: No
  Sender: FDA-Public Use
  Company Number: US-ELI_LILLY_AND_COMPANY-US202406006189

PATIENT
  Age: 34 Year
  Sex: Female

DRUGS (48)
  1. MOUNJARO [Suspect]
     Active Substance: TIRZEPATIDE
     Indication: Polycystic ovarian syndrome
     Dosage: 2.5 MG, WEEKLY (1/W)
     Route: 058
     Dates: start: 2023
  2. MOUNJARO [Suspect]
     Active Substance: TIRZEPATIDE
     Indication: Polycystic ovarian syndrome
     Dosage: 2.5 MG, WEEKLY (1/W)
     Route: 058
     Dates: start: 2023
  3. MOUNJARO [Suspect]
     Active Substance: TIRZEPATIDE
     Indication: Polycystic ovarian syndrome
     Dosage: 2.5 MG, WEEKLY (1/W)
     Route: 058
     Dates: start: 2023
  4. MOUNJARO [Suspect]
     Active Substance: TIRZEPATIDE
     Indication: Polycystic ovarian syndrome
     Dosage: 2.5 MG, WEEKLY (1/W)
     Route: 058
     Dates: start: 2023
  5. MOUNJARO [Suspect]
     Active Substance: TIRZEPATIDE
     Indication: Insulin resistance
  6. MOUNJARO [Suspect]
     Active Substance: TIRZEPATIDE
     Indication: Insulin resistance
  7. MOUNJARO [Suspect]
     Active Substance: TIRZEPATIDE
     Indication: Insulin resistance
  8. MOUNJARO [Suspect]
     Active Substance: TIRZEPATIDE
     Indication: Insulin resistance
  9. MOUNJARO [Suspect]
     Active Substance: TIRZEPATIDE
     Indication: Sleep apnoea syndrome
  10. MOUNJARO [Suspect]
     Active Substance: TIRZEPATIDE
     Indication: Sleep apnoea syndrome
  11. MOUNJARO [Suspect]
     Active Substance: TIRZEPATIDE
     Indication: Sleep apnoea syndrome
  12. MOUNJARO [Suspect]
     Active Substance: TIRZEPATIDE
     Indication: Sleep apnoea syndrome
  13. MOUNJARO [Suspect]
     Active Substance: TIRZEPATIDE
     Indication: Hypertension
  14. MOUNJARO [Suspect]
     Active Substance: TIRZEPATIDE
     Indication: Hypertension
  15. MOUNJARO [Suspect]
     Active Substance: TIRZEPATIDE
     Indication: Hypertension
  16. MOUNJARO [Suspect]
     Active Substance: TIRZEPATIDE
     Indication: Hypertension
  17. MOUNJARO [Suspect]
     Active Substance: TIRZEPATIDE
     Indication: Polycystic ovarian syndrome
     Dosage: 5 MG, WEEKLY (1/W)
     Route: 058
     Dates: start: 202307, end: 202312
  18. MOUNJARO [Suspect]
     Active Substance: TIRZEPATIDE
     Indication: Polycystic ovarian syndrome
     Dosage: 5 MG, WEEKLY (1/W)
     Route: 058
     Dates: start: 202307, end: 202312
  19. MOUNJARO [Suspect]
     Active Substance: TIRZEPATIDE
     Indication: Polycystic ovarian syndrome
     Dosage: 5 MG, WEEKLY (1/W)
     Route: 058
     Dates: start: 202307, end: 202312
  20. MOUNJARO [Suspect]
     Active Substance: TIRZEPATIDE
     Indication: Polycystic ovarian syndrome
     Dosage: 5 MG, WEEKLY (1/W)
     Route: 058
     Dates: start: 202307, end: 202312
  21. MOUNJARO [Suspect]
     Active Substance: TIRZEPATIDE
     Indication: Insulin resistance
  22. MOUNJARO [Suspect]
     Active Substance: TIRZEPATIDE
     Indication: Insulin resistance
  23. MOUNJARO [Suspect]
     Active Substance: TIRZEPATIDE
     Indication: Insulin resistance
  24. MOUNJARO [Suspect]
     Active Substance: TIRZEPATIDE
     Indication: Insulin resistance
  25. MOUNJARO [Suspect]
     Active Substance: TIRZEPATIDE
     Indication: Sleep apnoea syndrome
  26. MOUNJARO [Suspect]
     Active Substance: TIRZEPATIDE
     Indication: Sleep apnoea syndrome
  27. MOUNJARO [Suspect]
     Active Substance: TIRZEPATIDE
     Indication: Sleep apnoea syndrome
  28. MOUNJARO [Suspect]
     Active Substance: TIRZEPATIDE
     Indication: Sleep apnoea syndrome
  29. MOUNJARO [Suspect]
     Active Substance: TIRZEPATIDE
     Indication: Hypertension
  30. MOUNJARO [Suspect]
     Active Substance: TIRZEPATIDE
     Indication: Hypertension
  31. MOUNJARO [Suspect]
     Active Substance: TIRZEPATIDE
     Indication: Hypertension
  32. MOUNJARO [Suspect]
     Active Substance: TIRZEPATIDE
     Indication: Hypertension
  33. MOUNJARO [Suspect]
     Active Substance: TIRZEPATIDE
     Indication: Polycystic ovarian syndrome
     Dosage: 7.5 MG, WEEKLY (1/W)
     Route: 058
     Dates: start: 202401
  34. MOUNJARO [Suspect]
     Active Substance: TIRZEPATIDE
     Indication: Polycystic ovarian syndrome
     Dosage: 7.5 MG, WEEKLY (1/W)
     Route: 058
     Dates: start: 202401
  35. MOUNJARO [Suspect]
     Active Substance: TIRZEPATIDE
     Indication: Polycystic ovarian syndrome
     Dosage: 7.5 MG, WEEKLY (1/W)
     Route: 058
     Dates: start: 202401
  36. MOUNJARO [Suspect]
     Active Substance: TIRZEPATIDE
     Indication: Polycystic ovarian syndrome
     Dosage: 7.5 MG, WEEKLY (1/W)
     Route: 058
     Dates: start: 202401
  37. MOUNJARO [Suspect]
     Active Substance: TIRZEPATIDE
     Indication: Insulin resistance
     Dosage: 7.5 MG, WEEKLY (1/W)
     Route: 058
  38. MOUNJARO [Suspect]
     Active Substance: TIRZEPATIDE
     Indication: Insulin resistance
     Dosage: 7.5 MG, WEEKLY (1/W)
     Route: 058
  39. MOUNJARO [Suspect]
     Active Substance: TIRZEPATIDE
     Indication: Insulin resistance
     Dosage: 7.5 MG, WEEKLY (1/W)
     Route: 058
  40. MOUNJARO [Suspect]
     Active Substance: TIRZEPATIDE
     Indication: Insulin resistance
     Dosage: 7.5 MG, WEEKLY (1/W)
     Route: 058
  41. MOUNJARO [Suspect]
     Active Substance: TIRZEPATIDE
     Indication: Sleep apnoea syndrome
  42. MOUNJARO [Suspect]
     Active Substance: TIRZEPATIDE
     Indication: Sleep apnoea syndrome
  43. MOUNJARO [Suspect]
     Active Substance: TIRZEPATIDE
     Indication: Sleep apnoea syndrome
  44. MOUNJARO [Suspect]
     Active Substance: TIRZEPATIDE
     Indication: Sleep apnoea syndrome
  45. MOUNJARO [Suspect]
     Active Substance: TIRZEPATIDE
     Indication: Hypertension
  46. MOUNJARO [Suspect]
     Active Substance: TIRZEPATIDE
     Indication: Hypertension
  47. MOUNJARO [Suspect]
     Active Substance: TIRZEPATIDE
     Indication: Hypertension
  48. MOUNJARO [Suspect]
     Active Substance: TIRZEPATIDE
     Indication: Hypertension

REACTIONS (4)
  - Off label use [Unknown]
  - Incorrect dose administered [Unknown]
  - Injection site irritation [Recovered/Resolved]
  - Injection site urticaria [Recovered/Resolved]

NARRATIVE: CASE EVENT DATE: 20230101
